FAERS Safety Report 22353413 (Version 1)
Quarter: 2023Q2

REPORT INFORMATION
  Report Type: Report from Study
  Country: MX (occurrence: None)
  Receive Date: 20230523
  Receipt Date: 20230523
  Transmission Date: 20230721
  Serious: Yes (Other)
  Sender: FDA-Public Use
  Company Number: MX-ROCHE-3297881

PATIENT
  Age: 64 Year
  Sex: Female
  Weight: 88 kg

DRUGS (8)
  1. ATEZOLIZUMAB [Suspect]
     Active Substance: ATEZOLIZUMAB
     Indication: Triple negative breast cancer
     Dosage: ON 27/JAN/2022, SHE RECEIVED MOST RECENT DOSE OF ATEZOLIZUMAB PRIOR TO AE ONSET.
     Route: 041
     Dates: start: 20211015
  2. PACLITAXEL [Suspect]
     Active Substance: PACLITAXEL
     Indication: Triple negative breast cancer
     Dosage: ON 30/DEC/2022, SHE RECEIVED MOST RECENT DOSE OF PACLITAXEL PRIOR TO AE ONSET.
     Route: 042
     Dates: start: 20211015
  3. DOXORUBICIN [Suspect]
     Active Substance: DOXORUBICIN
     Indication: Triple negative breast cancer
     Dosage: ON 27/JAN/2022, SHE RECEIVED MOST RECENT DOSE OF DOXORUBICIN PRIOR TO AE ONSET.
     Route: 042
     Dates: start: 20220113
  4. CYCLOPHOSPHAMIDE [Suspect]
     Active Substance: CYCLOPHOSPHAMIDE
     Indication: Triple negative breast cancer
     Dosage: ON 27/JAN/2022, SHE RECEIVED MOST RECENT DOSE OF CYCLOPHOSPHAMIDE PRIOR TO AE ONSET.
     Route: 042
     Dates: start: 20220113
  5. FILGRASTIM [Suspect]
     Active Substance: FILGRASTIM
     Indication: Triple negative breast cancer
     Dosage: CYCLE 4?VISIT 1
     Route: 058
     Dates: start: 20220118, end: 20220118
  6. FILGRASTIM [Suspect]
     Active Substance: FILGRASTIM
     Dosage: CYCLE 4?VISIT 2
     Route: 058
     Dates: start: 20220129, end: 20220130
  7. FILGRASTIM [Suspect]
     Active Substance: FILGRASTIM
     Dosage: CYCLE 5?VISIT 1
     Route: 058
     Dates: start: 20220210, end: 20220213
  8. FILGRASTIM [Suspect]
     Active Substance: FILGRASTIM
     Dosage: CYCLE 5?VISIT 2
     Route: 058
     Dates: start: 20220305, end: 20220308

REACTIONS (1)
  - Lymphocyte count decreased [Recovered/Resolved]

NARRATIVE: CASE EVENT DATE: 20220215
